FAERS Safety Report 4576074-4 (Version None)
Quarter: 2005Q1

REPORT INFORMATION
  Report Type: 
  Country: None (occurrence: None)
  Receive Date: 20050201
  Receipt Date: 20050201
  Transmission Date: 20050727
  Serious: Yes (Hospitalization)
  Sender: FDA-Public Use
  Company Number: None

PATIENT
  Age: 61 Year
  Sex: Male
  Weight: 62.3 kg

DRUGS (10)
  1. CISPLATIN [Suspect]
     Indication: LUNG NEOPLASM MALIGNANT
     Dosage: 104MG   Q 3WK   INTRAVENOU
     Route: 042
     Dates: start: 20041229, end: 20050119
  2. DOCETAXEL     60 MG/M2 [Suspect]
     Indication: LUNG NEOPLASM MALIGNANT
     Dosage: 104MG    Q 3WK    INTRAVENOU
     Route: 042
     Dates: start: 20041229, end: 20030119
  3. GLEEVEC [Suspect]
     Indication: LUNG NEOPLASM MALIGNANT
     Dosage: 300MG   7 DAYS/CYCLE    ORAL
     Route: 048
     Dates: start: 20041215, end: 20050122
  4. EMEND [Concomitant]
  5. LIPITOR [Concomitant]
  6. DECADRON [Concomitant]
  7. TOPROL-XL [Concomitant]
  8. PROTONIX [Concomitant]
  9. ASPIRIN [Concomitant]
  10. OXYCODONE HCL [Concomitant]

REACTIONS (4)
  - DISEASE PROGRESSION [None]
  - FATIGUE [None]
  - NAUSEA [None]
  - PERFORMANCE STATUS DECREASED [None]
